FAERS Safety Report 5123183-7 (Version None)
Quarter: 2006Q4

REPORT INFORMATION
  Report Type: 
  Country: None (occurrence: None)
  Receive Date: 20061005
  Receipt Date: 20060925
  Transmission Date: 20070319
  Serious: Yes (Other)
  Sender: FDA-Public Use
  Company Number: 2006088282

PATIENT
  Age: 56 Year
  Sex: Female
  Weight: 52.1637 kg

DRUGS (8)
  1. CAMPTOSAR [Suspect]
     Indication: COLON CANCER
     Dosage: 340 MG (340 MG, DAILY OVER 90 MINUTES), INTRAVENOUS
     Route: 042
     Dates: start: 20060712
  2. ATENOLOL [Concomitant]
  3. ASPIRIN [Concomitant]
  4. XELODA [Concomitant]
  5. ATROPINE [Concomitant]
  6. DECADRON [Concomitant]
  7. CIMETIDINE [Concomitant]
  8. BENADRYL [Concomitant]

REACTIONS (6)
  - DIZZINESS [None]
  - DYSARTHRIA [None]
  - HYPOAESTHESIA [None]
  - HYPOAESTHESIA ORAL [None]
  - SPEECH DISORDER [None]
  - SWELLING FACE [None]
